FAERS Safety Report 19983481 (Version 1)
Quarter: 2021Q4

REPORT INFORMATION
  Report Type: Spontaneous
  Country: US (occurrence: US)
  Receive Date: 20211020
  Receipt Date: 20211020
  Transmission Date: 20220304
  Serious: Yes (Hospitalization)
  Sender: FDA-Public Use
  Company Number: None

PATIENT
  Age: 63 Year
  Sex: Male
  Weight: 49 kg

DRUGS (2)
  1. CISPLATIN [Suspect]
     Active Substance: CISPLATIN
     Dates: end: 20210908
  2. ALIMTA [Suspect]
     Active Substance: PEMETREXED DISODIUM
     Dates: end: 20210908

REACTIONS (11)
  - Asthenia [None]
  - Decreased appetite [None]
  - Ageusia [None]
  - Food intolerance [None]
  - Diarrhoea [None]
  - Dyspnoea exertional [None]
  - Back pain [None]
  - Musculoskeletal pain [None]
  - Disease progression [None]
  - Physical deconditioning [None]
  - Loss of personal independence in daily activities [None]

NARRATIVE: CASE EVENT DATE: 20211005
